FAERS Safety Report 5235987-0 (Version None)
Quarter: 2007Q1

REPORT INFORMATION
  Report Type: 
  Country: None (occurrence: None)
  Receive Date: 20061208
  Receipt Date: 20060519
  Transmission Date: 20070707
  Serious: Yes (Other)
  Sender: FDA-Public Use
  Company Number: 2006UW09839

PATIENT
  Age: 73 Year
  Sex: Female
  Weight: 72.574 kg

DRUGS (8)
  1. CRESTOR [Suspect]
     Indication: BLOOD CHOLESTEROL INCREASED
     Dosage: 5 MG DAILY PO
     Route: 048
  2. ZETIA [Concomitant]
  3. LOTREL [Concomitant]
  4. BAYER [Concomitant]
  5. ASPIRIN [Concomitant]
  6. TRIAMTERENE [Concomitant]
  7. NEXIUM ORAL [Concomitant]
  8. ZELNORM [Concomitant]

REACTIONS (1)
  - FLUSHING [None]
